FAERS Safety Report 14281113 (Version 2)
Quarter: 2018Q2

REPORT INFORMATION
  Report Type: Spontaneous
  Country: IL (occurrence: IL)
  Receive Date: 20171213
  Receipt Date: 20180420
  Transmission Date: 20180711
  Serious: Yes (Hospitalization)
  Sender: FDA-Public Use
  Company Number: IL-AMGEN-ISRSP2017182314

PATIENT
  Age: 84 Year
  Sex: Female

DRUGS (6)
  1. VITAMIN D [Concomitant]
     Active Substance: CHOLECALCIFEROL
     Dosage: 400 IU, QD
  2. ATORVASTATIN [Concomitant]
     Active Substance: ATORVASTATIN
  3. RALOXIFENE HCL [Concomitant]
     Active Substance: RALOXIFENE
  4. OMEPRAZOLE. [Concomitant]
     Active Substance: OMEPRAZOLE
  5. PROLIA [Suspect]
     Active Substance: DENOSUMAB
     Indication: OSTEOPOROSIS
     Dosage: 60 MG, UNK
     Route: 058
  6. CINNARIZINE [Concomitant]
     Active Substance: CINNARIZINE

REACTIONS (2)
  - Hypocalcaemia [Recovering/Resolving]
  - Blood parathyroid hormone increased [Unknown]
